FAERS Safety Report 21275457 (Version 1)
Quarter: 2022Q3

REPORT INFORMATION
  Report Type: Spontaneous
  Country: RU (occurrence: None)
  Receive Date: 20220831
  Receipt Date: 20220831
  Transmission Date: 20221027
  Serious: Yes (Hospitalization, Other)
  Sender: FDA-Public Use
  Company Number: RU-ROCHE-3167408

PATIENT
  Age: 32 Year
  Sex: Female

DRUGS (2)
  1. ATEZOLIZUMAB [Suspect]
     Active Substance: ATEZOLIZUMAB
     Indication: Hepatocellular carcinoma
     Route: 041
     Dates: start: 202103
  2. BEVACIZUMAB [Suspect]
     Active Substance: BEVACIZUMAB
     Indication: Hepatocellular carcinoma
     Route: 065
     Dates: start: 202103

REACTIONS (10)
  - Ischaemia [Unknown]
  - Hepatocellular carcinoma [Unknown]
  - Disease progression [Unknown]
  - Small intestinal haemorrhage [Unknown]
  - Blood loss anaemia [Unknown]
  - Chronic gastritis [Unknown]
  - Off label use [Unknown]
  - Metastases to retroperitoneum [Unknown]
  - Unevaluable event [Unknown]
  - Ill-defined disorder [Unknown]

NARRATIVE: CASE EVENT DATE: 20210701
